FAERS Safety Report 10171281 (Version 1)
Quarter: 2014Q2

REPORT INFORMATION
  Report Type: Spontaneous
  Country: US (occurrence: US)
  Receive Date: 20140514
  Receipt Date: 20140514
  Transmission Date: 20141212
  Serious: No
  Sender: FDA-Public Use
  Company Number: US-PFIZER INC-2014129714

PATIENT
  Sex: Female

DRUGS (2)
  1. TIKOSYN [Suspect]
     Dosage: UNK
  2. LUMIGAN [Interacting]
     Dosage: UNK
     Dates: start: 201404

REACTIONS (3)
  - Drug interaction [Unknown]
  - Chills [Unknown]
  - Speech disorder [Unknown]
